FAERS Safety Report 5449685-1 (Version None)
Quarter: 2007Q3

REPORT INFORMATION
  Report Type: 
  Country: None (occurrence: None)
  Receive Date: 20070910
  Receipt Date: 20070910
  Transmission Date: 20080115
  Serious: Yes (Hospitalization)
  Sender: FDA-Public Use
  Company Number: None

PATIENT
  Age: 61 Year
  Sex: Male
  Weight: 204.1187 kg

DRUGS (6)
  1. GEMZAR [Suspect]
     Indication: BREAST CANCER
     Dosage: 3300MG Q2WKS IV
     Route: 042
     Dates: start: 20070830
  2. ABRAXANE [Suspect]
     Indication: BREAST CANCER
     Dosage: 330MG Q2WKS IV
     Route: 042
     Dates: start: 20070830
  3. GLUCOVAN [Concomitant]
  4. CYMBALTA [Concomitant]
  5. TRAMADOL HCL [Concomitant]
  6. DICLOFENAC [Concomitant]

REACTIONS (2)
  - DYSURIA [None]
  - HAEMATURIA [None]
